FAERS Safety Report 4318857-1 (Version None)
Quarter: 2004Q1

REPORT INFORMATION
  Report Type: 
  Country: None (occurrence: None)
  Receive Date: 20040315
  Receipt Date: 20040114
  Transmission Date: 20041129
  Serious: Yes (Other)
  Sender: FDA-Public Use
  Company Number: 2003-BP-09794PF

PATIENT
  Age: 81 Year
  Sex: Female

DRUGS (7)
  1. SPIRIVA [Suspect]
     Indication: CHRONIC OBSTRUCTIVE AIRWAYS DISEASE
     Dosage: 18 MCG (18 MCG, 1 CAPSULE INHALED DAILY)
     Route: 045
     Dates: end: 20031112
  2. SEREVENT [Concomitant]
  3. HOME OXYGEN (OXYGEN) [Concomitant]
  4. ANTENEX (DIAZEPAM) [Concomitant]
  5. ATROVENT NEBULES (IPRATROPIUM BROMIDE) (UDV) [Concomitant]
  6. ATENOLOL [Concomitant]
  7. VENTOLIN INHALER (SALBUTAMOL SULFATE) [Concomitant]

REACTIONS (1)
  - TACHYARRHYTHMIA [None]
